FAERS Safety Report 5370151-6 (Version None)
Quarter: 2007Q2

REPORT INFORMATION
  Report Type: 
  Country: None (occurrence: None)
  Receive Date: 20070614
  Receipt Date: 20070417
  Transmission Date: 20071010
  Serious: Yes (Hospitalization)
  Sender: FDA-Public Use
  Company Number: BDI-009402

PATIENT
  Age: 25 Year
  Sex: Female

DRUGS (3)
  1. MULTIHANCE [Suspect]
     Indication: CONVULSION
     Dosage: 17 ML ONCE IV
     Route: 042
     Dates: start: 20070413, end: 20070413
  2. MULTIHANCE [Suspect]
     Indication: NUCLEAR MAGNETIC RESONANCE IMAGING BRAIN
     Dosage: 17 ML ONCE IV
     Route: 042
     Dates: start: 20070413, end: 20070413
  3. TOPAMAX [Concomitant]

REACTIONS (1)
  - CONVULSION [None]
